FAERS Safety Report 6760461-X (Version None)
Quarter: 2010Q2

REPORT INFORMATION
  Report Type: 
  Country: None (occurrence: None)
  Receive Date: 20100608
  Receipt Date: 20100528
  Transmission Date: 20101027
  Serious: Yes (Other)
  Sender: FDA-Public Use
  Company Number: PHHY2010SG35219

PATIENT

DRUGS (2)
  1. GALVUS [Suspect]
     Dosage: UNK
  2. RASILEZ [Suspect]

REACTIONS (1)
  - PROTEINURIA [None]
